FAERS Safety Report 22010023 (Version 1)
Quarter: 2023Q1

REPORT INFORMATION
  Report Type: Report from Study
  Country: BR (occurrence: BR)
  Receive Date: 20230220
  Receipt Date: 20230220
  Transmission Date: 20230418
  Serious: Yes (Hospitalization)
  Sender: FDA-Public Use
  Company Number: BR-GBT-020179

PATIENT
  Age: 48 Year
  Sex: Female
  Weight: 91 kg

DRUGS (1)
  1. VOXELOTOR [Suspect]
     Active Substance: VOXELOTOR
     Indication: Sickle cell disease
     Route: 048
     Dates: start: 20221010

REACTIONS (3)
  - Infection [Recovered/Resolved]
  - Sickle cell anaemia with crisis [Recovered/Resolved]
  - Asthenia [Recovered/Resolved]

NARRATIVE: CASE EVENT DATE: 20221107
